FAERS Safety Report 16555327 (Version 3)
Quarter: 2019Q3

REPORT INFORMATION
  Report Type: Spontaneous
  Country: JP (occurrence: JP)
  Receive Date: 20190710
  Receipt Date: 20190913
  Transmission Date: 20191004
  Serious: Yes (Death, Hospitalization, Other)
  Sender: FDA-Public Use
  Company Number: JP-009507513-1907JPN000774J

PATIENT
  Age: 68 Year
  Sex: Female
  Weight: 158 kg

DRUGS (7)
  1. CISPLATIN. [Suspect]
     Active Substance: CISPLATIN
     Indication: NON-SMALL CELL LUNG CANCER
     Dosage: 110 MILLIGRAM, Q3W
     Route: 041
     Dates: start: 20190215, end: 20190510
  2. LOXOPROFEN [Suspect]
     Active Substance: LOXOPROFEN
     Indication: PAIN
     Dosage: UNK
     Route: 048
     Dates: start: 20190122, end: 20190630
  3. KEYTRUDA [Suspect]
     Active Substance: PEMBROLIZUMAB
     Indication: NON-SMALL CELL LUNG CANCER
     Dosage: 200 MILLIGRAM, Q3W
     Route: 041
     Dates: start: 20190215, end: 20190620
  4. PEMETREXED DISODIUM [Suspect]
     Active Substance: PEMETREXED DISODIUM
     Indication: NON-SMALL CELL LUNG CANCER
     Dosage: 740 MILLIGRAM, Q3W
     Route: 041
     Dates: start: 20190215, end: 20190620
  5. PANVITAN [Suspect]
     Active Substance: VITAMINS
     Dosage: UNK
     Route: 048
     Dates: start: 20190122, end: 20190630
  6. FEXOFENADINE HYDROCHLORIDE. [Suspect]
     Active Substance: FEXOFENADINE HYDROCHLORIDE
     Dosage: UNK
     Route: 048
     Dates: start: 20190122, end: 20190630
  7. ZOLPIDEM TARTRATE. [Suspect]
     Active Substance: ZOLPIDEM TARTRATE
     Indication: INSOMNIA
     Dosage: UNK
     Route: 048
     Dates: start: 20190122, end: 20190630

REACTIONS (1)
  - Pneumonia staphylococcal [Fatal]

NARRATIVE: CASE EVENT DATE: 20190629
